FAERS Safety Report 9155625 (Version 3)
Quarter: 2013Q3

REPORT INFORMATION
  Report Type: Spontaneous
  Country: DE (occurrence: DE)
  Receive Date: 20130311
  Receipt Date: 20130705
  Transmission Date: 20140515
  Serious: Yes (Disabling)
  Sender: FDA-Public Use
  Company Number: DE-GLAXOSMITHKLINE-D0078983A

PATIENT
  Age: 64 Year
  Sex: Female
  Weight: 62 kg

DRUGS (6)
  1. VOTRIENT [Suspect]
     Indication: THYROID CANCER
     Route: 048
     Dates: start: 201203, end: 201212
  2. HCT [Concomitant]
     Dosage: 25MG PER DAY
     Route: 065
  3. L-THYROXIN [Concomitant]
     Indication: HYPOTHYROIDISM
     Dosage: 175MCG PER DAY
     Route: 065
  4. METOHEXAL [Concomitant]
     Indication: BLOOD PRESSURE INCREASED
     Dosage: 47.5MG PER DAY
     Route: 065
  5. AMLODIPINE [Concomitant]
     Dosage: 5MG PER DAY
     Route: 065
  6. PANTOPRAZOL [Concomitant]
     Dosage: 40MG PER DAY
     Route: 065

REACTIONS (5)
  - Bone marrow toxicity [Unknown]
  - Pancytopenia [Recovering/Resolving]
  - Toxicity to various agents [Unknown]
  - Myelofibrosis [Unknown]
  - Bone marrow oedema [Unknown]
